FAERS Safety Report 9182248 (Version 1)
Quarter: 2013Q1

REPORT INFORMATION
  Report Type: Spontaneous
  Country: US (occurrence: None)
  Receive Date: 20120626
  Receipt Date: 20120626
  Transmission Date: 20140127
  Serious: Yes (Other)
  Sender: FDA-Public Use
  Company Number: PHEH2011US010424

PATIENT
  Age: 76 Year
  Sex: Female

DRUGS (5)
  1. DIOVAN [Suspect]
     Dosage: 320/25 MG
  2. DIOVAN [Suspect]
     Dosage: 160 MG, 320 MG.
  3. ANALGESICS (NO INGREDIENTS/SUBSTNACES) [Concomitant]
  4. CARVEDILOL (CARVEDILOL) [Concomitant]
  5. AMLODIPINE (AMLODIPINE) [Concomitant]

REACTIONS (2)
  - Renal impairment [None]
  - Joint swelling [None]
